FAERS Safety Report 5114602-0 (Version None)
Quarter: 2006Q3

REPORT INFORMATION
  Report Type: 
  Country: None (occurrence: None)
  Receive Date: 20060926
  Receipt Date: 20060117
  Transmission Date: 20061208
  Serious: Yes (Life-Threatening)
  Sender: FDA-Public Use
  Company Number: JP-ROCHE-432925

PATIENT
  Age: 14 Year
  Sex: Male

DRUGS (9)
  1. TAMIFLU [Suspect]
     Route: 048
     Dates: start: 20040126, end: 20040126
  2. DOMPERIDONE [Concomitant]
     Dosage: REPORTED AS PERORIC.
     Route: 048
     Dates: start: 20040126, end: 20040131
  3. ALESION [Concomitant]
     Route: 048
     Dates: start: 20040126, end: 20040131
  4. COUGHCODE [Concomitant]
     Dosage: REPORTED AS COUGHCODE-N( ).
     Route: 048
     Dates: start: 20040126, end: 20040131
  5. ISALON [Concomitant]
     Dosage: FORMULATION REPORTED AS ORAL FORMULATION (NOT OTHERWISE SPECIFIED).
     Route: 048
     Dates: start: 20040126, end: 20040131
  6. LEVOFLOXACIN [Concomitant]
     Dosage: FORMULATION REPORTED AS ORAL FORMULATION (NOT OTHERWISE SPECIFIED).
     Route: 048
  7. DOMPERIDONE [Concomitant]
     Route: 065
  8. SOLITA-T [Concomitant]
     Route: 041
     Dates: start: 20040126, end: 20040126
  9. PRIMPERAN TAB [Concomitant]
     Route: 041
     Dates: start: 20040126, end: 20040126

REACTIONS (5)
  - ABNORMAL BEHAVIOUR [None]
  - CONFUSIONAL STATE [None]
  - HALLUCINATION [None]
  - RESTLESSNESS [None]
  - SCREAMING [None]
